FAERS Safety Report 6063007-7 (Version None)
Quarter: 2009Q1

REPORT INFORMATION
  Report Type: 
  Country: None (occurrence: None)
  Receive Date: 20090203
  Receipt Date: 20090128
  Transmission Date: 20090719
  Serious: Yes (Hospitalization)
  Sender: FDA-Public Use
  Company Number: FR-BRISTOL-MYERS SQUIBB COMPANY-14060289

PATIENT
  Age: 35 Year
  Sex: Male
  Weight: 60 kg

DRUGS (6)
  1. SUSTIVA [Suspect]
     Indication: HIV INFECTION
     Dates: start: 20071030
  2. TRUVADA [Suspect]
     Indication: HIV INFECTION
     Dosage: DOSAGE FORM = TAB
     Dates: start: 20071030, end: 20080201
  3. RIMIFON [Concomitant]
     Indication: TUBERCULOSIS
     Dates: start: 20071006
  4. RIFADIN [Concomitant]
     Indication: TUBERCULOSIS
     Dates: start: 20071006, end: 20080201
  5. ANTIVITAMIN K [Concomitant]
     Indication: PROPHYLAXIS
     Dates: start: 20071207, end: 20080125
  6. ATOVAQUONE [Concomitant]
     Dates: start: 20071206

REACTIONS (2)
  - RENAL FAILURE ACUTE [None]
  - RENAL TUBULAR NECROSIS [None]
